FAERS Safety Report 26165844 (Version 1)
Quarter: 2025Q4

REPORT INFORMATION
  Report Type: Spontaneous
  Country: IL (occurrence: IL)
  Receive Date: 20251216
  Receipt Date: 20251216
  Transmission Date: 20260117
  Serious: Yes (Other)
  Sender: B. BRAUN MEDICAL INC.
  Company Number: IL-B. Braun Medical Inc.-IL-BBM-202504805

PATIENT
  Age: 78 Year
  Sex: Female

DRUGS (1)
  1. CEFAZOLIN [Suspect]
     Active Substance: CEFAZOLIN
     Indication: Staphylococcal infection
     Dosage: CEFAZOLIN IV (2 G IV TID)

REACTIONS (1)
  - Coagulopathy [Unknown]
